FAERS Safety Report 14655347 (Version 3)
Quarter: 2018Q1

REPORT INFORMATION
  Report Type: Spontaneous
  Country: US (occurrence: US)
  Receive Date: 20180319
  Receipt Date: 20180323
  Transmission Date: 20180509
  Serious: No
  Sender: FDA-Public Use
  Company Number: US-FRESENIUS MEDICAL CARE RENAL THERAPIES GROUP-FMC-1803-000486

PATIENT
  Age: 52 Year
  Sex: Male
  Weight: 78.5 kg

DRUGS (13)
  1. LACTULOSE. [Concomitant]
     Active Substance: LACTULOSE
  2. INSULIN GLARGINE [Concomitant]
     Active Substance: INSULIN GLARGINE
  3. BUMETANIDE. [Concomitant]
     Active Substance: BUMETANIDE
  4. CARVEDILOL. [Concomitant]
     Active Substance: CARVEDILOL
  5. SODIUM ACETATE. [Concomitant]
     Active Substance: SODIUM ACETATE
  6. CALCIUM ACETATE. [Concomitant]
     Active Substance: CALCIUM ACETATE
  7. CLONIDINE. [Concomitant]
     Active Substance: CLONIDINE
  8. HYDRALAZINE [Concomitant]
     Active Substance: HYDRALAZINE HYDROCHLORIDE
  9. ISOSORBIDE MONONITRATE. [Concomitant]
     Active Substance: ISOSORBIDE MONONITRATE
  10. DELFLEX [Suspect]
     Active Substance: CALCIUM CHLORIDE\DEXTROSE\MAGNESIUM CHLORIDE\SODIUM CHLORIDE\SODIUM LACTATE
     Indication: END STAGE RENAL DISEASE
     Dosage: 2L  WITH 4 EXCHANGES
     Route: 033
     Dates: start: 20180118
  11. FERROUS SULFATE. [Concomitant]
     Active Substance: FERROUS SULFATE
  12. GENTAMICIN. [Concomitant]
     Active Substance: GENTAMICIN
  13. ROSUVASTATIN. [Concomitant]
     Active Substance: ROSUVASTATIN

REACTIONS (2)
  - Abdominal distension [Recovered/Resolved]
  - Dyspnoea [Recovered/Resolved]

NARRATIVE: CASE EVENT DATE: 20180226
